FAERS Safety Report 5035133-2 (Version None)
Quarter: 2006Q2

REPORT INFORMATION
  Report Type: 
  Country: None (occurrence: None)
  Receive Date: 20060519
  Receipt Date: 20060320
  Transmission Date: 20061013
  Serious: No
  Sender: FDA-Public Use
  Company Number: TPA2005A01684

PATIENT
  Age: 76 Year
  Sex: Female
  Weight: 69.8539 kg

DRUGS (5)
  1. ROZEREM [Suspect]
     Indication: INSOMNIA
     Dosage: 8 MG, PER ORAL
     Route: 048
     Dates: start: 20050929, end: 20051003
  2. ASA            (ACETYLSALICYLIC ACID) (81 MILLIGRAM) [Concomitant]
  3. CRESTOR                 (ROSUVASTATIN CALCIUM) (5 MILLIGRAM) [Concomitant]
  4. ZETIA [Concomitant]
  5. SYNTHROID (LEVOTHYROID SODIUM) (0.025 MILLIGRAM) [Concomitant]

REACTIONS (3)
  - HYPERTENSION [None]
  - INSOMNIA [None]
  - MALAISE [None]
